FAERS Safety Report 5512211-2 (Version None)
Quarter: 2007Q4

REPORT INFORMATION
  Report Type: 
  Country: None (occurrence: None)
  Receive Date: 20071112
  Receipt Date: 20071031
  Transmission Date: 20080405
  Serious: Yes (Hospitalization)
  Sender: FDA-Public Use
  Company Number: PHEH2007US14052

PATIENT
  Age: 60 Year
  Sex: Male

DRUGS (15)
  1. GLEEVEC [Suspect]
     Indication: CHRONIC MYELOID LEUKAEMIA
     Dosage: 400 MG, QD
     Route: 048
     Dates: start: 20030401, end: 20071001
  2. GLYBURIDE [Concomitant]
     Dosage: 2.5 MG, QD
     Route: 048
  3. METFORMIN [Concomitant]
     Dosage: 500 MG, BID
     Route: 048
  4. ACTOS [Concomitant]
     Dosage: 45 MG, QD
     Route: 048
  5. IMODIUM A-D [Concomitant]
     Dosage: UNK, PRN
     Route: 048
  6. PRILOSEC [Concomitant]
     Dosage: 20 MG, QD
     Route: 048
  7. FUROSEMIDE [Concomitant]
     Dosage: 20 MG, QOD
     Route: 048
  8. POTASSIUM CHLORIDE [Concomitant]
     Dosage: 20 MEQ, QOD
     Route: 048
  9. BENICAR [Concomitant]
     Dosage: 40 MG, QD
     Route: 048
  10. PRAVACHOL [Concomitant]
     Dosage: 40 MG, QD
     Route: 048
  11. SEREVENT [Concomitant]
     Dosage: UNK, BID
     Route: 048
  12. SPIRIVA [Concomitant]
     Dosage: 18 UG, QD
  13. COSOPT [Concomitant]
     Dosage: 1 DRP, BID, OD
     Route: 047
  14. XALATAN [Concomitant]
     Dosage: 1 DRP, QD, OD
     Route: 047
  15. PRED FORTE [Concomitant]
     Dosage: 1 DRP, BID, OS
     Route: 047

REACTIONS (7)
  - COLECTOMY [None]
  - COLON CANCER [None]
  - COLONOSCOPY ABNORMAL [None]
  - ILEITIS [None]
  - INTESTINAL ULCER [None]
  - LOWER GASTROINTESTINAL HAEMORRHAGE [None]
  - RECTAL HAEMORRHAGE [None]
